FAERS Safety Report 21213982 (Version 1)
Quarter: 2022Q3

REPORT INFORMATION
  Report Type: Spontaneous
  Country: US (occurrence: US)
  Receive Date: 20220816
  Receipt Date: 20220816
  Transmission Date: 20221026
  Serious: No
  Sender: FDA-Public Use
  Company Number: US-BIOGEN-2019BI00747881

PATIENT
  Sex: Female

DRUGS (1)
  1. TYSABRI [Interacting]
     Active Substance: NATALIZUMAB
     Indication: Multiple sclerosis
     Route: 050
     Dates: start: 20190530

REACTIONS (1)
  - Poor venous access [Unknown]
